FAERS Safety Report 9196341 (Version 3)
Quarter: 2014Q1

REPORT INFORMATION
  Report Type: Spontaneous
  Country: US (occurrence: None)
  Receive Date: 20120703
  Receipt Date: 20130724
  Transmission Date: 20141002
  Serious: Yes (Other)
  Sender: FDA-Public Use
  Company Number: PHEH2012US005484

PATIENT
  Age: 62 Year
  Sex: Female
  Weight: 64.9 kg

DRUGS (2)
  1. GILENYA [Suspect]
     Indication: MULTIPLE SCLEROSIS
     Route: 048
     Dates: start: 20120116
  2. CYMBALTA [Concomitant]

REACTIONS (10)
  - Nausea [None]
  - Headache [None]
  - White blood cell count decreased [None]
  - Lymphocyte count decreased [None]
  - Heart rate decreased [None]
  - Loss of libido [None]
  - Hepatic enzyme increased [None]
  - Dizziness [None]
  - Aspartate aminotransferase increased [None]
  - Alanine aminotransferase increased [None]
